FAERS Safety Report 8897417 (Version 1)
Quarter: 2012Q4

REPORT INFORMATION
  Report Type: Spontaneous
  Country: DE (occurrence: None)
  Receive Date: 20121102
  Receipt Date: 20121102
  Transmission Date: 20130627
  Serious: Yes (Hospitalization, Congenital Anomaly, Other)
  Sender: FDA-Public Use
  Company Number: E2B_00000428

PATIENT
  Sex: Male
  Weight: 5.44 kg

DRUGS (5)
  1. SERTRALINE (SERTRALINE ) [Suspect]
     Indication: DEPRESSION
     Route: 064
     Dates: start: 20100101
  2. SERTRALINE (SERTRALINE ) [Suspect]
     Indication: DEPRESSION
     Route: 064
     Dates: end: 20111106
  3. FOLIC ACID (FOLIO FORTE) (UNKNOWN) [Concomitant]
  4. HOMEOPATICS NOS (EUPHORBIUM) (UNKNOWN) [Concomitant]
  5. CLAVULANIC ACID AND AMOXICILLIN (AMOXICILLIN PLUS) (UNKNOWN) [Concomitant]

REACTIONS (10)
  - Neonatal respiratory distress syndrome [None]
  - Hypertonia neonatal [None]
  - Agitation neonatal [None]
  - Restlessness [None]
  - Patent ductus arteriosus [None]
  - Atrial septal defect [None]
  - Atrial septal defect [None]
  - Congenital tricuspid valve incompetence [None]
  - Large for dates baby [None]
  - Maternal drugs affecting foetus [None]
